FAERS Safety Report 4690529-3 (Version None)
Quarter: 2005Q2

REPORT INFORMATION
  Report Type: 
  Country: None (occurrence: None)
  Receive Date: 20050615
  Receipt Date: 20050110
  Transmission Date: 20051028
  Serious: Yes (Life-Threatening, Hospitalization, Disabling)
  Sender: FDA-Public Use
  Company Number: US-MERCK-0501USA00905

PATIENT
  Age: 60 Year
  Sex: Female

DRUGS (38)
  1. VIOXX [Suspect]
     Indication: PAIN
     Route: 048
     Dates: start: 19990701, end: 20030101
  2. VIOXX [Suspect]
     Route: 048
     Dates: start: 20010405, end: 20010717
  3. VIOXX [Suspect]
     Indication: ARTHRALGIA
     Route: 048
     Dates: start: 19990701, end: 20030101
  4. VIOXX [Suspect]
     Route: 048
     Dates: start: 20010405, end: 20010717
  5. CELEBREX [Concomitant]
     Route: 065
  6. ATIVAN [Concomitant]
     Route: 065
  7. CARDIZEM [Concomitant]
     Route: 065
  8. PREMARIN [Concomitant]
     Route: 065
  9. PROPULSID [Concomitant]
     Route: 065
  10. PHENOBARBITAL [Concomitant]
     Route: 065
  11. PREVACID [Concomitant]
     Route: 065
  12. FIBRO MALIC [Concomitant]
     Route: 065
  13. MINIPRESS [Concomitant]
     Route: 065
  14. DIMETHYL SULFONE [Concomitant]
     Route: 065
  15. PROZAC [Concomitant]
     Route: 065
  16. SALAGEN [Concomitant]
     Route: 065
  17. ASCORBIC ACID [Concomitant]
     Route: 065
  18. VITAMIN E [Concomitant]
     Route: 065
  19. DARVOCET-N 100 [Concomitant]
     Route: 065
  20. RESTORIL [Concomitant]
     Route: 065
  21. ESTRATEST [Concomitant]
     Route: 065
  22. EVOXAC [Concomitant]
     Route: 065
  23. MONOPRIL [Concomitant]
     Route: 065
  24. NITRO-BID [Concomitant]
     Route: 065
  25. AMBIEN [Concomitant]
     Indication: ANXIETY
     Route: 065
  26. REGLAN [Concomitant]
     Route: 065
  27. DIFLUCAN [Concomitant]
     Route: 048
     Dates: start: 20001001
  28. DIFLUCAN [Concomitant]
     Route: 065
     Dates: start: 20010101
  29. VITAMINS (UNSPECIFIED) [Concomitant]
     Route: 065
  30. ESGIC-PLUS TABLETS [Concomitant]
     Route: 065
     Dates: start: 20010101
  31. MYLANTA + MYLANTA DS [Concomitant]
     Route: 065
     Dates: start: 20010101
  32. ASPIRIN [Concomitant]
     Route: 065
  33. LASIX [Concomitant]
     Route: 065
  34. K-DUR 10 [Concomitant]
     Route: 065
  35. LOPRESSOR [Concomitant]
     Route: 065
  36. SYNTHROID [Concomitant]
     Route: 065
  37. LIPITOR [Concomitant]
     Route: 065
  38. PROTONIX [Concomitant]
     Route: 065

REACTIONS (28)
  - ACUTE MYOCARDIAL INFARCTION [None]
  - ANGINA UNSTABLE [None]
  - ARTHRALGIA [None]
  - BLOOD PRESSURE INCREASED [None]
  - CANDIDIASIS [None]
  - CORONARY ARTERY DISEASE [None]
  - DIFFICULTY IN WALKING [None]
  - DRY SKIN [None]
  - FATIGUE [None]
  - FIBROMYALGIA [None]
  - FLUID RETENTION [None]
  - FUNGAL INFECTION [None]
  - HEADACHE [None]
  - HIATUS HERNIA [None]
  - JOINT CREPITATION [None]
  - JOINT SPRAIN [None]
  - JOINT STIFFNESS [None]
  - LIGAMENT SPRAIN [None]
  - MUSCLE SPASMS [None]
  - NIGHT SWEATS [None]
  - ORAL CANDIDIASIS [None]
  - PEPTIC ULCER [None]
  - PHARYNGEAL CANDIDIASIS [None]
  - PRURITUS [None]
  - SLEEP DISORDER [None]
  - TREMOR [None]
  - ULCER [None]
  - VOMITING [None]
